FAERS Safety Report 4740321-6 (Version None)
Quarter: 2005Q3

REPORT INFORMATION
  Report Type: 
  Country: None (occurrence: None)
  Receive Date: 20050801
  Receipt Date: 20050408
  Transmission Date: 20060218
  Serious: Yes (Hospitalization)
  Sender: FDA-Public Use
  Company Number: 05P-163-0296906-00

PATIENT
  Age: 68 Year
  Sex: Female
  Weight: 67.1324 kg

DRUGS (5)
  1. SYNTHROID [Suspect]
     Indication: GOITRE
     Dosage: 75 MCG, 1 IN 1 D, PER ORAL  (THERAPY DATES: SEE IMAGE);  88 MCG, 1 IN 1 D, PER ORAL
     Route: 048
     Dates: start: 20041101
  2. IODINE [Suspect]
     Indication: CATHETERISATION CARDIAC
     Dosage: INTRAVENOUS
     Route: 042
     Dates: start: 19980101, end: 19980101
  3. MULTIVITAMIN [Suspect]
     Indication: VITAMIN A
     Dosage: 1 TABLET, 1 IN 1 D, PER ORAL
     Route: 048
     Dates: start: 20050101, end: 20050219
  4. HYZAAR [Concomitant]
  5. ATENOLOL [Concomitant]

REACTIONS (7)
  - CARDIAC FAILURE CONGESTIVE [None]
  - DIARRHOEA [None]
  - GOITRE [None]
  - NAUSEA [None]
  - PRURITUS [None]
  - URTICARIA [None]
  - VOMITING [None]
